FAERS Safety Report 18776925 (Version 2)
Quarter: 2021Q1

REPORT INFORMATION
  Report Type: Spontaneous
  Country: GB (occurrence: GB)
  Receive Date: 20210122
  Receipt Date: 20210212
  Transmission Date: 20210419
  Serious: Yes (Death, Hospitalization)
  Sender: FDA-Public Use
  Company Number: GB-TEVA-2021-GB-1868600

PATIENT
  Age: 74 Year
  Sex: Female

DRUGS (50)
  1. PERTUZUMAB. [Suspect]
     Active Substance: PERTUZUMAB
     Dosage: (DOSE MODIFIED), UNIT DOSE : 840 MG
     Route: 042
     Dates: start: 20180116, end: 20180116
  2. CLOTRIMAZOLE. [Concomitant]
     Active Substance: CLOTRIMAZOLE
     Dosage: 2 PERCENT DAILY; UNIT DOSE : 1 PERCENT
     Route: 061
     Dates: start: 202002
  3. DEXAMETHASONE. [Concomitant]
     Active Substance: DEXAMETHASONE
     Dosage: 12 MILLIGRAM DAILY; UNIT DOSE : 6 MG
     Route: 048
     Dates: end: 20190109
  4. MIDAZOLAM. [Concomitant]
     Active Substance: MIDAZOLAM
     Dosage: UNIT DOSE : 10 MG
     Route: 050
     Dates: start: 2020
  5. CAPECITABINE. [Suspect]
     Active Substance: CAPECITABINE
     Dosage: 3600 MILLIGRAM DAILY; (DOSE MODIFIED), UNIT DOSE : 1800 MG
     Route: 048
     Dates: start: 20191011, end: 20191127
  6. PERTUZUMAB. [Suspect]
     Active Substance: PERTUZUMAB
     Indication: BREAST CANCER METASTATIC
     Dosage: (DRUG DISCONTINUED DUE TO DISEASE PROGRESSION FURTHER ANTICANCER TREATMENT), UNIT DOSE : 420 MG
     Route: 042
     Dates: start: 20190118, end: 20190711
  7. TRASTUZUMAB. [Suspect]
     Active Substance: TRASTUZUMAB
     Dosage: (DOSE MODIFIED).UNIT DOSE : 882 MG
     Route: 042
     Dates: start: 20180116, end: 20180116
  8. DENOSUMAB [Suspect]
     Active Substance: DENOSUMAB
     Indication: PRODUCT USED FOR UNKNOWN INDICATION
     Dosage: UNIT DOSE : 120 MG
     Route: 058
     Dates: start: 20180503, end: 20200214
  9. FOLIC ACID. [Concomitant]
     Active Substance: FOLIC ACID
     Dosage: 5 MILLIGRAM DAILY;
     Route: 048
     Dates: start: 20160211
  10. MIDAZOLAM. [Concomitant]
     Active Substance: MIDAZOLAM
     Dosage: UNIT DOSE : 30 MG
     Route: 058
     Dates: start: 2020
  11. NITROFURANTOIN. [Concomitant]
     Active Substance: NITROFURANTOIN
     Indication: URINARY TRACT INFECTION
     Dosage: 200 MILLIGRAM DAILY; UNIT DOSE : 50 MG
     Route: 048
     Dates: start: 20190403, end: 20190405
  12. POTASSIUM CHLORIDE;SODIUM CHLORIDE [Concomitant]
     Active Substance: POTASSIUM CHLORIDE\SODIUM CHLORIDE
  13. CAPECITABINE. [Suspect]
     Active Substance: CAPECITABINE
     Dosage: UNIT DOSE : 1800 MG
     Route: 048
     Dates: start: 20191011
  14. PERTUZUMAB. [Suspect]
     Active Substance: PERTUZUMAB
     Dosage: (DRUG DISCONTINUED DUE TO DISEASE PROGRESSION FURTHER ANTICANCER TREATMENT), UNIT DOSE : 420 MG
     Route: 042
     Dates: start: 20180503, end: 20181115
  15. MIDAZOLAM. [Concomitant]
     Active Substance: MIDAZOLAM
     Dosage: UNIT DOSE : 30 MG
     Route: 058
     Dates: start: 2020
  16. ONDANSETRON [Concomitant]
     Active Substance: ONDANSETRON
     Dosage: 12 MILLIGRAM DAILY; UNIT DOSE : 4 MG
     Route: 048
     Dates: start: 2019
  17. VANCOMYCIN [Concomitant]
     Active Substance: VANCOMYCIN
     Dosage: UNIT DOSE : 125 MG
     Route: 050
     Dates: start: 20200302, end: 20200316
  18. CAPECITABINE. [Suspect]
     Active Substance: CAPECITABINE
     Indication: BREAST CANCER METASTATIC
     Dosage: 4000 MILLIGRAM DAILY; UNIT DOSE : 2000 MG
     Route: 048
     Dates: start: 20191204, end: 20200214
  19. LETROZOLE. [Suspect]
     Active Substance: LETROZOLE
     Indication: BREAST CANCER METASTATIC
     Dosage: 2.5 MILLIGRAM DAILY;
     Route: 048
     Dates: start: 20171128
  20. AMOXICILLIN. [Concomitant]
     Active Substance: AMOXICILLIN
     Indication: URINARY TRACT INFECTION
     Dosage: 1500 MILLIGRAM DAILY; UNIT DOSE : 500 MG
     Route: 042
     Dates: start: 20190330, end: 20190401
  21. CYCLIZINE [Concomitant]
     Active Substance: CYCLIZINE
     Dosage: 150 MILLIGRAM DAILY; UNIT DOSE : 50 MG
     Route: 048
     Dates: start: 2019, end: 20190403
  22. LANSOPRAZOLE. [Concomitant]
     Active Substance: LANSOPRAZOLE
     Indication: METASTASES TO CENTRAL NERVOUS SYSTEM
     Dosage: 30 MILLIGRAM DAILY;
     Route: 048
     Dates: start: 201812
  23. LEVETIRACETAM. [Concomitant]
     Active Substance: LEVETIRACETAM
     Indication: SEIZURE
     Dosage: UNIT DOSE : 1500 MG
     Route: 048
  24. METFORMIN [Concomitant]
     Active Substance: METFORMIN HYDROCHLORIDE
     Dosage: UNIT DOSE : 500 MG
     Route: 048
     Dates: end: 2018
  25. METRONIDAZOLE. [Concomitant]
     Active Substance: METRONIDAZOLE
     Indication: DIARRHOEA
     Dosage: 1200 MILLIGRAM DAILY; UNIT DOSE : 400 MG
     Route: 048
     Dates: start: 20190401, end: 20190403
  26. NIFEDIPINE. [Concomitant]
     Active Substance: NIFEDIPINE
     Dosage: 60 MILLIGRAM DAILY;
     Route: 048
     Dates: end: 2018
  27. DEXAMETHASONE. [Concomitant]
     Active Substance: DEXAMETHASONE
     Dosage: 16 MILLIGRAM DAILY; UNIT DOSE : 4 MG
     Route: 048
     Dates: start: 20190417, end: 20190424
  28. GLYCOPYRRONIUM BROMIDE [Concomitant]
     Active Substance: GLYCOPYRRONIUM
     Dosage: UNIT DOSE : 400 MICROGRAM
     Route: 058
     Dates: start: 20190330
  29. ROSUVASTATIN. [Concomitant]
     Active Substance: ROSUVASTATIN
     Dosage: 5 MILLIGRAM DAILY;
     Route: 048
     Dates: end: 2019
  30. CAPECITABINE. [Suspect]
     Active Substance: CAPECITABINE
     Dosage: 1800 MG (DOSE MODIFIED)
     Route: 048
     Dates: start: 20191127
  31. TRASTUZUMAB. [Suspect]
     Active Substance: TRASTUZUMAB
     Dosage: UNIT DOSE : 588 MG
     Route: 042
     Dates: start: 20190118, end: 20191115
  32. ASPIRIN. [Concomitant]
     Active Substance: ASPIRIN
     Dosage: 75 MILLIGRAM DAILY;
     Route: 048
     Dates: start: 2019, end: 2019
  33. DEXAMETHASONE. [Concomitant]
     Active Substance: DEXAMETHASONE
     Indication: METASTASES TO CENTRAL NERVOUS SYSTEM
     Dosage: 8 MILLIGRAM DAILY; UNIT DOSE : 4 MG
     Route: 048
     Dates: start: 20190110, end: 2019
  34. DEXAMETHASONE. [Concomitant]
     Active Substance: DEXAMETHASONE
     Dosage: 16 MILLIGRAM DAILY; UNIT DOSE : 8 MG
     Route: 048
     Dates: start: 202005
  35. MORPHINE SULPHATE [Concomitant]
     Active Substance: MORPHINE SULFATE
     Dosage: UNIT DOSE : 2.5 MG
     Route: 058
     Dates: start: 20190330
  36. NYSTATIN. [Concomitant]
     Active Substance: NYSTATIN
     Dosage: UNIT DOSE : 1 MG
     Route: 048
     Dates: start: 20200505, end: 20200511
  37. TRASTUZUMAB. [Suspect]
     Active Substance: TRASTUZUMAB
     Indication: BREAST CANCER METASTATIC
     Dosage: (DRUG DISCONTINUED DUE TO DISEASE PROGRESSION FURTHER ANTICANCER TREATMENT), UNIT DOSE : 588 MG
     Route: 042
     Dates: start: 20180503, end: 20181115
  38. CEPHALEXIN. [Concomitant]
     Active Substance: CEPHALEXIN
     Indication: URINARY TRACT INFECTION
     Route: 048
     Dates: start: 20190208, end: 2019
  39. DEXAMETHASONE. [Concomitant]
     Active Substance: DEXAMETHASONE
     Dosage: 2 MILLIGRAM DAILY;
     Route: 048
     Dates: start: 20190425, end: 2019
  40. ENOXAPARIN [Concomitant]
     Active Substance: ENOXAPARIN
     Dosage: 80 MILLIGRAM DAILY;
     Route: 058
     Dates: start: 202002
  41. PROCHLORPERAZINE. [Concomitant]
     Active Substance: PROCHLORPERAZINE
     Dosage: 6 MILLIGRAM DAILY; UNIT DOSE : 3 MG
     Route: 065
     Dates: start: 2020
  42. SERTRALINE [Concomitant]
     Active Substance: SERTRALINE HYDROCHLORIDE
     Dosage: 50 MILLIGRAM DAILY;
     Route: 048
  43. SIMVASTATIN. [Concomitant]
     Active Substance: SIMVASTATIN
     Dosage: 20 MILLIGRAM DAILY;
     Route: 048
     Dates: start: 2019
  44. COCODAMOL [Concomitant]
     Active Substance: ACETAMINOPHEN\CODEINE PHOSPHATE
     Dosage: UNIT DOSE : 30 MG
     Route: 048
     Dates: end: 20200512
  45. HYDROCORTISONE. [Concomitant]
     Active Substance: HYDROCORTISONE
     Dosage: UNIT DOSE :0.5 PERCENT
     Route: 061
     Dates: start: 20191025, end: 2019
  46. LACOSAMIDE. [Concomitant]
     Active Substance: LACOSAMIDE
     Dosage: UNIT DOSE : 100 MG
     Route: 048
     Dates: start: 20200519
  47. LACOSAMIDE. [Concomitant]
     Active Substance: LACOSAMIDE
     Dosage: 100 MILLIGRAM DAILY; UNIT DOSE : 50 MG
     Route: 048
     Dates: start: 20200512, end: 20200519
  48. MIDAZOLAM. [Concomitant]
     Active Substance: MIDAZOLAM
     Dosage: UNIT DOSE : 2.5 MG
     Route: 058
  49. PARACETAMOL [Concomitant]
     Active Substance: ACETAMINOPHEN
     Dosage: UNIT DOSE : 500 MG
     Route: 048
  50. POTASSIUM CHLORIDE. [Concomitant]
     Active Substance: POTASSIUM CHLORIDE
     Indication: HYPOKALAEMIA
     Dosage: 1 OTHER
     Route: 042
     Dates: start: 20190329, end: 20190401

REACTIONS (3)
  - Disease progression [Fatal]
  - Off label use [Unknown]
  - Dyspnoea [Recovered/Resolved]

NARRATIVE: CASE EVENT DATE: 20200224
